FAERS Safety Report 8229089-9 (Version None)
Quarter: 2012Q1

REPORT INFORMATION
  Report Type: 
  Country: None (occurrence: None)
  Receive Date: 20120322
  Receipt Date: 20120321
  Transmission Date: 20120608
  Serious: Yes (Hospitalization)
  Sender: FDA-Public Use
  Company Number: CH-BAYER-2012-027320

PATIENT
  Sex: Male
  Weight: 49 kg

DRUGS (17)
  1. ALDACTONE [Suspect]
     Dosage: 25 MG, QD
     Route: 048
     Dates: end: 20120104
  2. TORSEMIDE [Suspect]
     Dosage: UNK
     Dates: start: 20120113
  3. CORDARONE [Concomitant]
     Dosage: 200 MG, QOD
     Route: 048
  4. BISOPROLOL FUMARATE [Concomitant]
     Dosage: 5 MG, UNK
     Route: 048
  5. PHENPROCOUMON [Concomitant]
     Dosage: UNK
     Route: 048
  6. METFORMIN HCL [Concomitant]
     Dosage: 500 MG, BID
     Route: 048
     Dates: start: 20111229, end: 20111231
  7. ACETAMINOPHEN [Concomitant]
     Dosage: 500 MG, QID
     Route: 048
     Dates: end: 20111228
  8. MOTILIUM [Concomitant]
  9. RAMIPRIL [Suspect]
     Dosage: 2.5 MG, QD
     Route: 048
     Dates: end: 20120103
  10. AMOXICILLIN AND CLAVULANATE POTASSIUM [Suspect]
     Indication: WOUND INFECTION
     Dosage: 2.2 MG, QD
     Dates: start: 20111223
  11. RAMIPRIL [Suspect]
     Dosage: UNK
     Dates: start: 20120110
  12. PREDNISONE [Concomitant]
     Dosage: 10 MG, QD
  13. CIPROFLOXACIN HCL [Suspect]
     Indication: WOUND INFECTION
     Dosage: 750 MG, BID
     Route: 048
     Dates: start: 20111223, end: 20120102
  14. ROCALTROL [Concomitant]
     Dosage: 0.25 MG, QD
  15. TORSEMIDE [Suspect]
     Dosage: 10 MG, UNK
     Dates: start: 20111224, end: 20120103
  16. ATORVASTATIN CALCIUM [Concomitant]
     Dosage: 40 MG, QD
     Route: 048
     Dates: end: 20120117
  17. PANTOPRAZOLE [Concomitant]
     Dosage: 40 MG, QD
     Route: 048

REACTIONS (3)
  - RENAL FAILURE ACUTE [None]
  - TUBULOINTERSTITIAL NEPHRITIS [None]
  - PROTEINURIA [None]
